FAERS Safety Report 23852298 (Version 1)
Quarter: 2024Q2

REPORT INFORMATION
  Report Type: Spontaneous
  Country: DE (occurrence: DE)
  Receive Date: 20240514
  Receipt Date: 20240514
  Transmission Date: 20240715
  Serious: Yes (Hospitalization)
  Sender: FDA-Public Use
  Company Number: None

PATIENT
  Age: 79 Year
  Sex: Male
  Weight: 90 kg

DRUGS (9)
  1. EPLERENONE [Suspect]
     Active Substance: EPLERENONE
     Indication: Product used for unknown indication
     Dosage: 25 MG, 1-0-0-0, TABLET
  2. METOPROLOL [Suspect]
     Active Substance: METOPROLOL
     Indication: Product used for unknown indication
     Dosage: 47.5 MG, 1-0-1-0, PROLONGED-RELEASE TABLETS
  3. TORSEMIDE [Suspect]
     Active Substance: TORSEMIDE
     Indication: Product used for unknown indication
     Dosage: 10 MG, 1-0-0-0, TABLET
  4. SACUBITRIL\VALSARTAN [Suspect]
     Active Substance: SACUBITRIL\VALSARTAN
     Indication: Product used for unknown indication
     Dosage: 24MG/26MG, 20/26 MG, 1-0-1-0, TABLET
  5. SIMVASTATIN [Concomitant]
     Active Substance: SIMVASTATIN
     Dosage: 40 MG, 0-0-1-0, TABLET
  6. APIXABAN [Concomitant]
     Active Substance: APIXABAN
     Dosage: 2.5 MG, 1-0-1-0
  7. EZETIMIBE [Concomitant]
     Active Substance: EZETIMIBE
     Dosage: 10 MG, 0-0-1-0, TABLET
  8. METFORMIN [Concomitant]
     Active Substance: METFORMIN HYDROCHLORIDE
     Dosage: 1000 MG, 1-0-0-1, TABLET
  9. FOLIC ACID [Concomitant]
     Active Substance: FOLIC ACID
     Dosage: 5 MG, 1-0-0-0, TABLET

REACTIONS (10)
  - Sinusitis [Unknown]
  - Chills [Unknown]
  - Product prescribing error [Unknown]
  - Fall [Unknown]
  - Pyrexia [Unknown]
  - Cough [Unknown]
  - Oropharyngeal pain [Unknown]
  - Vomiting [Unknown]
  - Dizziness [Unknown]
  - Syncope [Unknown]
